FAERS Safety Report 8282914-8 (Version None)
Quarter: 2012Q2

REPORT INFORMATION
  Report Type: 
  Country: None (occurrence: None)
  Receive Date: 20120413
  Receipt Date: 20120406
  Transmission Date: 20120825
  Serious: Yes (Hospitalization)
  Sender: FDA-Public Use
  Company Number: US-GENZYME-MOZO-1000472

PATIENT
  Sex: Female
  Weight: 73.8 kg

DRUGS (14)
  1. BORTEZOMIB [Suspect]
     Dosage: 1.3 MG/M2, ONCE
     Route: 042
     Dates: start: 20110206, end: 20110206
  2. ZITHROMAX [Concomitant]
     Indication: UPPER RESPIRATORY TRACT INFECTION
     Dosage: UNK
     Route: 065
     Dates: start: 20110101, end: 20110101
  3. MOZOBIL [Suspect]
     Indication: MULTIPLE MYELOMA
     Dosage: 320 MCG/KG, ONCE
     Route: 058
     Dates: start: 20110109, end: 20110109
  4. BORTEZOMIB [Suspect]
     Dosage: 1.3 MG/M2, ONCE
     Route: 042
     Dates: start: 20110109, end: 20110109
  5. MOZOBIL [Suspect]
     Dosage: 320 MCG/KG, ONCE
     Route: 058
     Dates: start: 20110116, end: 20110116
  6. ADVAIR DISKUS 100/50 [Concomitant]
     Indication: PRODUCT USED FOR UNKNOWN INDICATION
     Dosage: 1 OTHER, BID
     Route: 055
  7. NORVASC [Concomitant]
     Indication: PRODUCT USED FOR UNKNOWN INDICATION
     Dosage: 10 MG, QD
     Route: 048
  8. ALBUTEROL [Concomitant]
     Indication: PRODUCT USED FOR UNKNOWN INDICATION
     Dosage: 1 OTHER, Q4HR
     Route: 055
  9. BORTEZOMIB [Suspect]
     Indication: MULTIPLE MYELOMA
     Dosage: 1.3 MG/M2, ONCE
     Route: 042
     Dates: start: 20110106, end: 20110106
  10. BORTEZOMIB [Suspect]
     Dosage: 1.3 MG/M2, ONCE
     Route: 042
     Dates: start: 20110113, end: 20110113
  11. MOZOBIL [Suspect]
     Indication: HAEMATOPOIETIC STEM CELL MOBILISATION
     Dosage: 320 MCG/KG, QD
     Route: 058
     Dates: start: 20110104, end: 20110106
  12. MOZOBIL [Suspect]
     Dosage: 320 MCG/KG, ONCE
     Route: 058
     Dates: start: 20110113, end: 20110113
  13. MOZOBIL [Suspect]
     Dosage: 320 MCG/KG, ONCE
     Route: 058
     Dates: start: 20110206, end: 20110206
  14. BORTEZOMIB [Suspect]
     Dosage: 1.3 MG/M2, ONCE
     Route: 042
     Dates: start: 20110116, end: 20110116

REACTIONS (3)
  - UPPER RESPIRATORY TRACT INFECTION [None]
  - INFLUENZA [None]
  - THERAPEUTIC RESPONSE DECREASED [None]
